FAERS Safety Report 8576528-X (Version None)
Quarter: 2012Q3

REPORT INFORMATION
  Report Type: 
  Country: None (occurrence: None)
  Receive Date: 20120807
  Receipt Date: 20120727
  Transmission Date: 20120928
  Serious: Yes (Hospitalization)
  Sender: FDA-Public Use
  Company Number: US-PERRIGO-12US006499

PATIENT
  Sex: Male
  Weight: 24.943 kg

DRUGS (1)
  1. IBUPROFEN [Suspect]
     Indication: PYREXIA
     Dosage: 1.5 TSP, BID
     Route: 048
     Dates: start: 20120714, end: 20120714

REACTIONS (4)
  - DYSPNOEA [None]
  - COUGH [None]
  - UNDERDOSE [None]
  - HYPERSENSITIVITY [None]
